FAERS Safety Report 5384955-7 (Version None)
Quarter: 2007Q3

REPORT INFORMATION
  Report Type: 
  Country: None (occurrence: None)
  Receive Date: 20070709
  Receipt Date: 20070625
  Transmission Date: 20080115
  Serious: Yes (Hospitalization, Other)
  Sender: FDA-Public Use
  Company Number: 07H-163-0312806-00

PATIENT
  Age: 72 Year
  Sex: Female

DRUGS (1)
  1. DOBUTAMINE IN 5% DEXTROSE INJECTION (DOBUTAMINE/DEXTROSE ) (DOBUTAMINE [Suspect]
     Indication: CARDIAC STRESS TEST
     Dosage: 40 MCG/KG/MIN, INFUSION, 5-40 MCG/KG/MIN OVE 3-MIN INTERVALS, INFUSION

REACTIONS (1)
  - STRESS CARDIOMYOPATHY [None]
